FAERS Safety Report 23112703 (Version 3)
Quarter: 2024Q4

REPORT INFORMATION
  Report Type: Report from Study
  Country: CO (occurrence: CO)
  Receive Date: 20231027
  Receipt Date: 20241212
  Transmission Date: 20250114
  Serious: Yes (Hospitalization, Other)
  Sender: GLAXOSMITHKLINE
  Company Number: CO-GLAXOSMITHKLINE-CO2023AMR145560

PATIENT

DRUGS (1)
  1. MEPOLIZUMAB [Suspect]
     Active Substance: MEPOLIZUMAB
     Indication: Asthma
     Dosage: 100 MG, MO
     Dates: start: 20230809, end: 20241128

REACTIONS (19)
  - Hospitalisation [Recovered/Resolved]
  - Pneumonia [Not Recovered/Not Resolved]
  - Pulmonary fibrosis [Not Recovered/Not Resolved]
  - Respiratory distress [Not Recovered/Not Resolved]
  - Dyspnoea exertional [Not Recovered/Not Resolved]
  - Loss of personal independence in daily activities [Not Recovered/Not Resolved]
  - Asthma [Unknown]
  - Snoring [Not Recovered/Not Resolved]
  - Nausea [Not Recovered/Not Resolved]
  - Discomfort [Recovering/Resolving]
  - Productive cough [Recovering/Resolving]
  - Pyrexia [Recovering/Resolving]
  - Arthralgia [Recovering/Resolving]
  - COVID-19 [Recovering/Resolving]
  - Influenza like illness [Recovering/Resolving]
  - Influenza [Recovered/Resolved]
  - Malaise [Recovered/Resolved]
  - Dry eye [Recovered/Resolved]
  - Eye irritation [Recovered/Resolved]

NARRATIVE: CASE EVENT DATE: 20240911
